FAERS Safety Report 5751002-4 (Version None)
Quarter: 2008Q2

REPORT INFORMATION
  Report Type: 
  Country: None (occurrence: None)
  Receive Date: 20080528
  Receipt Date: 20080520
  Transmission Date: 20081010
  Serious: Yes (Hospitalization)
  Sender: FDA-Public Use
  Company Number: PL-ASTRAZENECA-2008SE02558

PATIENT
  Age: 8051 Day
  Sex: Female

DRUGS (1)
  1. XYLOCAINE [Suspect]
     Indication: TONSILLAR DISORDER
     Route: 050
     Dates: start: 20080220, end: 20080220

REACTIONS (2)
  - CONVULSION [None]
  - SYNCOPE [None]
